FAERS Safety Report 21840975 (Version 2)
Quarter: 2024Q2

REPORT INFORMATION
  Report Type: Spontaneous
  Country: MX (occurrence: MX)
  Receive Date: 20230110
  Receipt Date: 20240618
  Transmission Date: 20240716
  Serious: Yes (Hospitalization)
  Sender: FDA-Public Use
  Company Number: MX-ABBVIE-4261434

PATIENT
  Sex: Female
  Weight: 72 kg

DRUGS (1)
  1. HUMIRA [Suspect]
     Active Substance: ADALIMUMAB
     Indication: Hidradenitis
     Route: 058
     Dates: start: 2017, end: 202210

REACTIONS (8)
  - Uterine haemorrhage [Recovered/Resolved]
  - COVID-19 [Recovered/Resolved with Sequelae]
  - Carpal tunnel syndrome [Recovered/Resolved]
  - Influenza [Recovered/Resolved]
  - Injection site rash [Not Recovered/Not Resolved]
  - Impaired healing [Unknown]
  - Anaemia [Unknown]
  - Lung disorder [Unknown]

NARRATIVE: CASE EVENT DATE: 20200101
